FAERS Safety Report 14249911 (Version 1)
Quarter: 2017Q4

REPORT INFORMATION
  Report Type: Spontaneous
  Country: GB (occurrence: GB)
  Receive Date: 20171205
  Receipt Date: 20171205
  Transmission Date: 20180321
  Serious: Yes (Hospitalization, Disabling)
  Sender: FDA-Public Use
  Company Number: None

PATIENT
  Age: 31 Year
  Sex: Male
  Weight: 100 kg

DRUGS (3)
  1. DERMOVATE [Suspect]
     Active Substance: CLOBETASOL
     Indication: ECZEMA
     Route: 061
  2. EUMOVATE [Suspect]
     Active Substance: CLOBETASONE BUTYRATE
  3. CITALAPRAM [Concomitant]

REACTIONS (2)
  - Skin irritation [None]
  - Malaise [None]

NARRATIVE: CASE EVENT DATE: 19990101
